FAERS Safety Report 22021958 (Version 5)
Quarter: 2023Q1

REPORT INFORMATION
  Report Type: Spontaneous
  Country: CZ (occurrence: CZ)
  Receive Date: 20230222
  Receipt Date: 20230328
  Transmission Date: 20230417
  Serious: No
  Sender: FDA-Public Use
  Company Number: CZ-MYLANLABS-2023M1018943

PATIENT
  Age: 58 Year
  Sex: Male

DRUGS (4)
  1. ADALIMUMAB [Suspect]
     Active Substance: ADALIMUMAB
     Indication: Psoriatic arthropathy
     Dosage: UNK
     Route: 058
     Dates: start: 201909, end: 202010
  2. METHOTREXATE [Concomitant]
     Active Substance: METHOTREXATE
     Indication: Psoriatic arthropathy
     Dosage: 15 MILLIGRAM, QW/QWK
     Route: 065
     Dates: start: 201909
  3. METHOTREXATE [Concomitant]
     Active Substance: METHOTREXATE
     Dosage: UNK, DECREASED DOSAGE
     Route: 065
     Dates: start: 201909
  4. NIMESULIDE [Concomitant]
     Active Substance: NIMESULIDE
     Indication: Psoriatic arthropathy
     Dosage: 100 MILLIGRAM, QD,
     Route: 065

REACTIONS (1)
  - Drug ineffective [Unknown]
